FAERS Safety Report 16237589 (Version 1)
Quarter: 2019Q2

REPORT INFORMATION
  Report Type: Spontaneous
  Country: DE (occurrence: DE)
  Receive Date: 20190425
  Receipt Date: 20190425
  Transmission Date: 20190711
  Serious: Yes (Other)
  Sender: FDA-Public Use
  Company Number: DE-TORRENT-00013850

PATIENT
  Age: 57 Year
  Sex: Male
  Weight: 65 kg

DRUGS (2)
  1. CANDESARTAN. [Interacting]
     Active Substance: CANDESARTAN
     Indication: PRODUCT USED FOR UNKNOWN INDICATION
     Dosage: UNKNOWN
     Dates: start: 20180812
  2. VENLAFAXIN [Suspect]
     Active Substance: VENLAFAXINE HYDROCHLORIDE
     Indication: DEPRESSION
     Dosage: 2 X 75MG
     Route: 048
     Dates: start: 20120411

REACTIONS (2)
  - Syncope [Recovered/Resolved]
  - Drug interaction [Recovered/Resolved]

NARRATIVE: CASE EVENT DATE: 20180812
